FAERS Safety Report 6184308-8 (Version None)
Quarter: 2009Q2

REPORT INFORMATION
  Report Type: 
  Country: None (occurrence: None)
  Receive Date: 20090508
  Receipt Date: 20090429
  Transmission Date: 20091009
  Serious: Yes (Other)
  Sender: FDA-Public Use
  Company Number: US-AVENTIS-200913771US

PATIENT
  Sex: Female

DRUGS (3)
  1. LANTUS [Suspect]
     Indication: TYPE 2 DIABETES MELLITUS
     Route: 058
     Dates: start: 20050101, end: 20070101
  2. LANTUS [Suspect]
     Route: 058
     Dates: start: 20070101
  3. CORONARY VASODILATORS [Concomitant]
     Indication: CHEST PAIN
     Dosage: DOSE: UNK

REACTIONS (4)
  - CATARACT [None]
  - DIABETIC NEUROPATHY [None]
  - TRANSIENT ISCHAEMIC ATTACK [None]
  - VISUAL ACUITY REDUCED [None]
